FAERS Safety Report 14731017 (Version 3)
Quarter: 2018Q4

REPORT INFORMATION
  Report Type: Spontaneous
  Country: JP (occurrence: JP)
  Receive Date: 20180406
  Receipt Date: 20181228
  Transmission Date: 20190204
  Serious: Yes (Hospitalization)
  Sender: FDA-Public Use
  Company Number: JP-009507513-1708JPN003016J

PATIENT
  Age: 62 Year
  Sex: Male

DRUGS (4)
  1. GLUCOBAY [Concomitant]
     Active Substance: ACARBOSE
     Dosage: UNK
     Route: 048
  2. INSULIN [Concomitant]
     Active Substance: INSULIN NOS
     Dosage: 2 UNITS
     Route: 065
  3. JANUVIA [Suspect]
     Active Substance: SITAGLIPTIN PHOSPHATE
     Indication: DIABETES MELLITUS
     Dosage: 50 MG, QD, AFTER BREAKFAST
     Route: 048
  4. GLUFAST [Concomitant]
     Active Substance: MITIGLINIDE
     Dosage: UNK
     Route: 048

REACTIONS (7)
  - Muscular weakness [Unknown]
  - Palpitations [Unknown]
  - Dizziness postural [Unknown]
  - Decreased appetite [Unknown]
  - Malaise [Unknown]
  - Tremor [Unknown]
  - Insomnia [Unknown]

NARRATIVE: CASE EVENT DATE: 20170820
